FAERS Safety Report 5319446-2 (Version None)
Quarter: 2007Q2

REPORT INFORMATION
  Report Type: 
  Country: None (occurrence: None)
  Receive Date: 20070508
  Receipt Date: 20070425
  Transmission Date: 20071010
  Serious: Yes (Other)
  Sender: FDA-Public Use
  Company Number: US-ELI_LILLY_AND_COMPANY-US200704005647

PATIENT
  Age: 52 Year
  Sex: Male

DRUGS (3)
  1. SIMVASTATIN [Concomitant]
  2. PAROXETINE [Concomitant]
  3. STRATTERA [Suspect]
     Dosage: 25 MG, DAILY (1/D)

REACTIONS (1)
  - VENTRICULAR TACHYCARDIA [None]
